FAERS Safety Report 14784294 (Version 8)
Quarter: 2018Q3

REPORT INFORMATION
  Report Type: Report from Study
  Country: DE (occurrence: DE)
  Receive Date: 20180420
  Receipt Date: 20180703
  Transmission Date: 20181010
  Serious: Yes (Other)
  Sender: FDA-Public Use
  Company Number: DE-PFIZER INC-2018159747

PATIENT
  Age: 35 Year
  Sex: Male

DRUGS (5)
  1. CODEINE [Suspect]
     Active Substance: CODEINE
     Dosage: UNK
  2. MORPHINE SULFATE. [Suspect]
     Active Substance: MORPHINE SULFATE
     Dosage: UNK
  3. NORDAZEPAM [Suspect]
     Active Substance: NORDAZEPAM
     Dosage: UNK
  4. DIAZEPAM. [Suspect]
     Active Substance: DIAZEPAM
     Dosage: UNK
  5. 3,4?METHYLENEDIOXYPYROVALERONE [Suspect]
     Active Substance: METHYLENEDIOXYPYROVALERONE HYDROCHLORIDE
     Dosage: UNK

REACTIONS (9)
  - Thinking abnormal [Unknown]
  - Vestibular disorder [Unknown]
  - Disturbance in attention [Unknown]
  - Logorrhoea [Unknown]
  - Dysarthria [Unknown]
  - Psychomotor skills impaired [Unknown]
  - Toxicity to various agents [Unknown]
  - Mood swings [Unknown]
  - Memory impairment [Unknown]
